FAERS Safety Report 21431198 (Version 1)
Quarter: 2022Q4

REPORT INFORMATION
  Report Type: Spontaneous
  Country: US (occurrence: US)
  Receive Date: 20221009
  Receipt Date: 20221009
  Transmission Date: 20230113
  Serious: No
  Sender: FDA-Public Use
  Company Number: US-SA-SAC20221006000879

PATIENT
  Age: 8 Year
  Sex: Male
  Weight: 28.122 kg

DRUGS (6)
  1. DUPIXENT [Suspect]
     Active Substance: DUPILUMAB
     Indication: Illness
     Dosage: 300 MG, Q4W
     Route: 058
     Dates: start: 20220808
  2. VITAMIN C [Concomitant]
     Active Substance: ASCORBIC ACID
  3. VITAMIN D3 [Concomitant]
     Active Substance: CHOLECALCIFEROL
     Dosage: 10 MCG CAPSULE
  4. PREVACID 24 HR [Concomitant]
     Active Substance: LANSOPRAZOLE
     Dosage: 15MG
  5. VITAMINS NOS [Concomitant]
     Active Substance: VITAMINS
  6. RETINOL [Concomitant]
     Active Substance: RETINOL
     Dosage: 10000 UNIT CAPSULE

REACTIONS (1)
  - Condition aggravated [Unknown]
